FAERS Safety Report 13990909 (Version 1)
Quarter: 2017Q3

REPORT INFORMATION
  Report Type: Spontaneous
  Country: US (occurrence: US)
  Receive Date: 20170920
  Receipt Date: 20170920
  Transmission Date: 20171128
  Serious: No
  Sender: FDA-Public Use
  Company Number: None

PATIENT
  Sex: Male
  Weight: 40.5 kg

DRUGS (1)
  1. MEMANTINE HCL [Suspect]
     Active Substance: MEMANTINE
     Indication: AUTISM SPECTRUM DISORDER
     Route: 048

REACTIONS (3)
  - Abdominal pain upper [None]
  - Drug ineffective [None]
  - Headache [None]
